FAERS Safety Report 9067819 (Version 1)
Quarter: 2013Q1

REPORT INFORMATION
  Report Type: Spontaneous
  Country: US (occurrence: US)
  Receive Date: 20130128
  Receipt Date: 20130128
  Transmission Date: 20140127
  Serious: No
  Sender: FDA-Public Use
  Company Number: US-ELI_LILLY_AND_COMPANY-US201301006059

PATIENT
  Sex: Female

DRUGS (2)
  1. CYMBALTA [Suspect]
     Dosage: 60 MG, UNKNOWN
     Dates: start: 2011
  2. ZOCOR [Concomitant]
     Dosage: 40 MG, UNK

REACTIONS (2)
  - Hepatic enzyme increased [Unknown]
  - Alcohol abuse [Unknown]
